FAERS Safety Report 13915009 (Version 1)
Quarter: 2017Q3

REPORT INFORMATION
  Report Type: Spontaneous
  Country: US (occurrence: US)
  Receive Date: 20170828
  Receipt Date: 20170828
  Transmission Date: 20171127
  Serious: Yes (Other)
  Sender: FDA-Public Use
  Company Number: None

PATIENT
  Age: 79 Year
  Sex: Male
  Weight: 99 kg

DRUGS (11)
  1. PLAVIX [Concomitant]
     Active Substance: CLOPIDOGREL BISULFATE
  2. LIPITOR [Concomitant]
     Active Substance: ATORVASTATIN CALCIUM
  3. VITAMIN D [Concomitant]
     Active Substance: CHOLECALCIFEROL
  4. ALLOPURINOL. [Concomitant]
     Active Substance: ALLOPURINOL
  5. ZYTIGA [Suspect]
     Active Substance: ABIRATERONE ACETATE
     Indication: PROSTATE CANCER
     Route: 048
     Dates: start: 20170329
  6. ZOLOFT [Concomitant]
     Active Substance: SERTRALINE HYDROCHLORIDE
  7. RANEXA [Concomitant]
     Active Substance: RANOLAZINE
  8. PREDNISONE. [Concomitant]
     Active Substance: PREDNISONE
  9. GLIPIZIDE ER [Concomitant]
     Active Substance: GLIPIZIDE
  10. RAMIPRIL. [Concomitant]
     Active Substance: RAMIPRIL
  11. LUPRON DEPOT [Concomitant]
     Active Substance: LEUPROLIDE ACETATE

REACTIONS (1)
  - Disease progression [None]
